FAERS Safety Report 4404322-X (Version None)
Quarter: 2004Q3

REPORT INFORMATION
  Report Type: 
  Country: None (occurrence: None)
  Receive Date: 20040719
  Receipt Date: 20040713
  Transmission Date: 20050211
  Serious: Yes (Death)
  Sender: FDA-Public Use
  Company Number: 2004AP03625

PATIENT
  Age: 60 Year
  Sex: Male

DRUGS (6)
  1. IRESSA [Suspect]
     Indication: LUNG SQUAMOUS CELL CARCINOMA STAGE UNSPECIFIED
     Dosage: 250 MG DAILY PO
     Route: 048
     Dates: start: 20040621, end: 20040628
  2. IRESSA [Suspect]
     Indication: NON-SMALL CELL LUNG CANCER
     Dosage: 250 MG DAILY PO
     Route: 048
     Dates: start: 20040621, end: 20040628
  3. LANIRAPID [Concomitant]
  4. MS CONTIN [Concomitant]
  5. NOVAMIN [Concomitant]
  6. HALCION [Concomitant]

REACTIONS (1)
  - HEPATITIS FULMINANT [None]
